FAERS Safety Report 8155813-X (Version None)
Quarter: 2012Q1

REPORT INFORMATION
  Report Type: 
  Country: None (occurrence: None)
  Receive Date: 20120222
  Receipt Date: 20120220
  Transmission Date: 20120608
  Serious: Yes (Life-Threatening)
  Sender: FDA-Public Use
  Company Number: JP-BAYER-2012-003045

PATIENT
  Age: 79 Year
  Sex: Male
  Weight: 59 kg

DRUGS (5)
  1. NEXAVAR [Suspect]
     Dosage: 400 MG, BID
     Route: 048
     Dates: start: 20111024, end: 20111126
  2. SLOW-K [Concomitant]
     Dosage: DAILY DOSE 1200 MG
     Route: 048
  3. URSO 250 [Concomitant]
     Dosage: DAILY DOSE 300 MG
     Route: 048
  4. CANDESARTAN CILEXETIL [Concomitant]
     Dosage: DAILY DOSE 4 MG
     Route: 048
  5. NEXAVAR [Suspect]
     Indication: HEPATIC NEOPLASM MALIGNANT
     Dosage: 400 MG, QD
     Route: 048
     Dates: start: 20101018, end: 20101023

REACTIONS (2)
  - HEPATIC FAILURE [None]
  - HEPATITIS ACUTE [None]
